FAERS Safety Report 10327551 (Version 2)
Quarter: 2014Q3

REPORT INFORMATION
  Report Type: Spontaneous
  Country: NL (occurrence: NL)
  Receive Date: 20140721
  Receipt Date: 20140916
  Transmission Date: 20150326
  Serious: Yes (Hospitalization, Other)
  Sender: FDA-Public Use
  Company Number: NL-BIOGENIDEC-2014BI069941

PATIENT
  Age: 41 Year
  Sex: Female

DRUGS (2)
  1. AVONEX [Suspect]
     Active Substance: INTERFERON BETA-1A
     Indication: RELAPSING-REMITTING MULTIPLE SCLEROSIS
     Route: 030
     Dates: start: 20130801, end: 20140625
  2. DEPAKINE CHRONO [Concomitant]
     Active Substance: VALPROATE SODIUM

REACTIONS (4)
  - Meralgia paraesthetica [Unknown]
  - Injection site abscess [Unknown]
  - Subcutaneous abscess [Unknown]
  - Fistula [Unknown]

NARRATIVE: CASE EVENT DATE: 201309
